FAERS Safety Report 4350611-7 (Version None)
Quarter: 2004Q2

REPORT INFORMATION
  Report Type: 
  Country: None (occurrence: None)
  Receive Date: 20040427
  Receipt Date: 20040412
  Transmission Date: 20050107
  Serious: Yes (Life-Threatening, Hospitalization)
  Sender: FDA-Public Use
  Company Number: ZONI001393

PATIENT
  Age: 45 Year
  Sex: Female

DRUGS (3)
  1. EXCEGRAN (ZONISAMIDE) [Suspect]
     Indication: DRUG USE FOR UNKNOWN INDICATION
     Dosage: 200 MG DAILY ORAL
     Route: 048
     Dates: start: 20040330, end: 20040401
  2. FAMOTIDINE [Concomitant]
  3. NICARDIPINE HCL [Concomitant]

REACTIONS (2)
  - HAEMATOMA [None]
  - STEVENS-JOHNSON SYNDROME [None]
